FAERS Safety Report 5003148-6 (Version None)
Quarter: 2006Q2

REPORT INFORMATION
  Report Type: 
  Country: None (occurrence: None)
  Receive Date: 20060516
  Receipt Date: 20060510
  Transmission Date: 20061013
  Serious: Yes (Life-Threatening)
  Sender: FDA-Public Use
  Company Number: JP-NOVOPROD-253122

PATIENT
  Age: 59 Year
  Sex: Male

DRUGS (3)
  1. NOVORAPID CHU [Suspect]
     Indication: DIABETES MELLITUS
  2. INSULIN INSULATARD NPH NORDISK [Concomitant]
  3. WARFARIN SODIUM [Concomitant]

REACTIONS (2)
  - INFLUENZA [None]
  - PNEUMONIA [None]
